FAERS Safety Report 6067990-5 (Version None)
Quarter: 2009Q1

REPORT INFORMATION
  Report Type: 
  Country: None (occurrence: None)
  Receive Date: 20090206
  Receipt Date: 20090126
  Transmission Date: 20090719
  Serious: Yes (Life-Threatening, Hospitalization)
  Sender: FDA-Public Use
  Company Number: US-JNJFOC-20071002080

PATIENT
  Sex: Female
  Weight: 24.1 kg

DRUGS (4)
  1. TYLENOL COLD PLUS [Suspect]
     Indication: COUGH
  2. TYLENOL COLD PLUS [Suspect]
     Indication: OROPHARYNGEAL PAIN
  3. TYLENOL COLD PLUS [Suspect]
     Indication: NASAL CONGESTION
  4. TYLENOL COLD PLUS [Suspect]
     Indication: PYREXIA

REACTIONS (1)
  - TOXIC EPIDERMAL NECROLYSIS [None]
